FAERS Safety Report 23171156 (Version 1)
Quarter: 2023Q4

REPORT INFORMATION
  Report Type: Spontaneous
  Country: US (occurrence: None)
  Receive Date: 20231110
  Receipt Date: 20231110
  Transmission Date: 20240110
  Serious: No
  Sender: FDA-Public Use
  Company Number: None

PATIENT
  Sex: Female
  Weight: 86.4 kg

DRUGS (3)
  1. SPIRONOLACTONE [Suspect]
     Active Substance: SPIRONOLACTONE
     Indication: Acne
     Dates: start: 20190508, end: 20190915
  2. ACYCLOVIR [Concomitant]
     Active Substance: ACYCLOVIR
  3. Kirkland gummy adult MVI [Concomitant]

REACTIONS (4)
  - Acne [None]
  - Weight increased [None]
  - Hormone level abnormal [None]
  - Paradoxical drug reaction [None]
